FAERS Safety Report 4424068-1 (Version None)
Quarter: 2004Q3

REPORT INFORMATION
  Report Type: 
  Country: None (occurrence: None)
  Receive Date: 20040806
  Receipt Date: 20040803
  Transmission Date: 20050211
  Serious: Yes (Death)
  Sender: FDA-Public Use
  Company Number: TPG0T01257477

PATIENT
  Age: 66 Year
  Sex: Male

DRUGS (4)
  1. TRENANTONE (LEUPRORELIN) [Suspect]
     Indication: PROSTATE CANCER
     Dosage: (11.25 MG, 1 IN 3 M) SUBCUTANEOUS
     Route: 058
     Dates: start: 19981006, end: 19981006
  2. ENALAPRIL MALEATE [Concomitant]
  3. ASPIRIN [Concomitant]
  4. MOLSIDOMINE [Concomitant]

REACTIONS (2)
  - CARDIAC PROCEDURE COMPLICATION [None]
  - MYOCARDIAL INFARCTION [None]
